FAERS Safety Report 9406309 (Version 2)
Quarter: 2013Q3

REPORT INFORMATION
  Report Type: Spontaneous
  Country: JP (occurrence: JP)
  Receive Date: 20130717
  Receipt Date: 20130726
  Transmission Date: 20140515
  Serious: No
  Sender: FDA-Public Use
  Company Number: JP-009507513-1307JPN006394

PATIENT
  Age: 53 Year
  Sex: Female

DRUGS (19)
  1. SINGULAIR [Suspect]
     Indication: ASTHMA
     Dosage: 10 MG, QD
     Route: 048
     Dates: start: 20130619, end: 20130701
  2. FLUTIDE [Concomitant]
     Indication: ASTHMA
     Dosage: 400 MICROGRAM TWICE A DAY
     Route: 055
     Dates: start: 20130605
  3. PREDONINE [Concomitant]
     Indication: DRUG ERUPTION
     Dosage: 15 MG, QD
     Route: 048
     Dates: start: 20130703, end: 20130704
  4. PREDONINE [Concomitant]
     Dosage: 10 MG, QD
     Route: 048
     Dates: start: 20130705, end: 20130708
  5. MUCOBULIN [Concomitant]
     Indication: SPUTUM RETENTION
     Dosage: 15 MG, TID
     Route: 048
     Dates: start: 20130605
  6. HOKUNALIN [Concomitant]
     Indication: ASTHMA
     Dosage: 3 DF, QD
     Route: 048
     Dates: start: 20130605
  7. SOLU-MEDROL [Concomitant]
     Dosage: 40 MG, BID
     Route: 041
     Dates: start: 20130605, end: 20130605
  8. INTAL [Concomitant]
     Dosage: 2 ML, QD
     Route: 051
     Dates: start: 20130605, end: 20130605
  9. MEPTIN AIR [Concomitant]
     Indication: ASTHMA
     Dosage: 20 MICROGRAM, QD
     Route: 055
     Dates: start: 20130605
  10. UNASYN (SULTAMICILLIN TOSYLATE) [Concomitant]
     Dosage: DAILY DOSE UNKNOWN
     Route: 065
  11. EPINAZION [Concomitant]
     Indication: DRUG ERUPTION
     Dosage: 20 MG, QD
     Route: 065
     Dates: start: 20130703, end: 20130708
  12. GASTER D [Concomitant]
     Dosage: 20 MG, QD
     Route: 065
     Dates: start: 20130703
  13. NERISONA [Concomitant]
     Indication: DRUG ERUPTION
     Dosage: DAILY DOSE UNKNOWN
     Route: 062
     Dates: start: 20130703
  14. MUCODYNE [Concomitant]
     Dosage: DAILY DOSE UNKNOWN
     Route: 065
     Dates: end: 20130708
  15. OXYGEN [Concomitant]
     Dosage: 1L/MIN; DAILY DOSE UNKNOWN
     Route: 055
     Dates: start: 20130605
  16. SODIUM CHLORIDE [Concomitant]
     Dosage: 100 ML INFUSION
     Route: 042
     Dates: start: 20130605
  17. VENETLIN [Concomitant]
     Dosage: 0.3 ML, QD
     Dates: start: 20130605
  18. ASVERIN [Concomitant]
     Indication: COUGH
     Dosage: 20 MG, TID
     Route: 048
     Dates: start: 20130605, end: 20130618
  19. HOKUNALIN [Concomitant]
     Indication: ASTHMA
     Dosage: 2 MG, QD
     Route: 062
     Dates: start: 20130605, end: 20130608

REACTIONS (3)
  - Drug eruption [Recovering/Resolving]
  - Headache [Recovering/Resolving]
  - Hypertension [Recovering/Resolving]
